FAERS Safety Report 9541325 (Version 2)
Quarter: 2013Q4

REPORT INFORMATION
  Report Type: Spontaneous
  Country: TR (occurrence: TR)
  Receive Date: 20130923
  Receipt Date: 20131009
  Transmission Date: 20140711
  Serious: Yes (Other)
  Sender: FDA-Public Use
  Company Number: TR-ROCHE-1278862

PATIENT
  Age: 2 Month
  Sex: Male

DRUGS (1)
  1. XOLAIR [Suspect]
     Indication: URTICARIA
     Route: 064
     Dates: start: 20121003

REACTIONS (2)
  - Premature baby [Unknown]
  - Foetal exposure during pregnancy [Unknown]
